FAERS Safety Report 13377911 (Version 2)
Quarter: 2017Q3

REPORT INFORMATION
  Report Type: Report from Study
  Country: AU (occurrence: AU)
  Receive Date: 20170328
  Receipt Date: 20170929
  Transmission Date: 20171127
  Serious: Yes (Other)
  Sender: FDA-Public Use
  Company Number: AU-REGENERON PHARMACEUTICALS, INC.-2017-13537

PATIENT

DRUGS (2)
  1. EYLEA [Suspect]
     Active Substance: AFLIBERCEPT
     Indication: NEOVASCULAR AGE-RELATED MACULAR DEGENERATION
     Dosage: INJECTIONS EVERY 8-9 WEEKS
     Route: 031
     Dates: start: 20141001, end: 201709
  2. EYLEA [Suspect]
     Active Substance: AFLIBERCEPT
     Dosage: INJECTIONS EVERY 8-9 WEEKS
     Route: 031
     Dates: start: 20141001

REACTIONS (4)
  - Vitreous floaters [Recovered/Resolved]
  - Urinary tract infection [Unknown]
  - Visual impairment [Not Recovered/Not Resolved]
  - Influenza [Not Recovered/Not Resolved]

NARRATIVE: CASE EVENT DATE: 2017
